FAERS Safety Report 10028189 (Version 1)
Quarter: 2014Q1

REPORT INFORMATION
  Report Type: Spontaneous
  Country: FR (occurrence: None)
  Receive Date: 20140307
  Receipt Date: 20140307
  Transmission Date: 20141002
  Serious: Yes (Other)
  Sender: FDA-Public Use
  Company Number: GAM-058-14-FR

PATIENT
  Age: 79 Year
  Sex: Male

DRUGS (1)
  1. OCTAGAM (HUMAN NORMAL IMMUNOGLOBULIN (IV)) [Suspect]
     Indication: IMMUNE THROMBOCYTOPENIC PURPURA
     Dosage: INTRAVENOUS (NOT OTHERWISE SPECIFIED)?
     Route: 042

REACTIONS (2)
  - Glucose urine [None]
  - Glycosuria [None]
